FAERS Safety Report 5485872-4 (Version None)
Quarter: 2007Q4

REPORT INFORMATION
  Report Type: 
  Country: None (occurrence: None)
  Receive Date: 20071015
  Receipt Date: 20071002
  Transmission Date: 20080405
  Serious: Yes (Hospitalization)
  Sender: FDA-Public Use
  Company Number: US-ELI_LILLY_AND_COMPANY-US200710000427

PATIENT
  Age: 62 Year
  Sex: Male

DRUGS (15)
  1. CYMBALTA [Suspect]
     Dosage: 60 MG, DAILY (1/D)
     Route: 048
     Dates: start: 20060301
  2. CYMBALTA [Suspect]
     Dosage: 60 MG, UNK
  3. QUINIDINE HCL [Concomitant]
  4. LYRICA [Concomitant]
     Dates: end: 20070101
  5. DIGITEK [Concomitant]
  6. DIOVAN [Concomitant]
  7. HYDRALAZINE HCL [Concomitant]
  8. WARFARIN SODIUM [Concomitant]
  9. POTASSIUM CHLORIDE [Concomitant]
  10. GLIPIZIDE [Concomitant]
  11. FUROSEMIDE [Concomitant]
  12. LIPITOR [Concomitant]
  13. LUNESTA [Concomitant]
  14. GABAPENTIN [Concomitant]
  15. ASPIRIN [Concomitant]

REACTIONS (5)
  - AMNESIA [None]
  - DIZZINESS [None]
  - FALL [None]
  - HEAD INJURY [None]
  - SELF INJURIOUS BEHAVIOUR [None]
